FAERS Safety Report 19891580 (Version 7)
Quarter: 2022Q4

REPORT INFORMATION
  Report Type: Report from Study
  Country: AT (occurrence: AT)
  Receive Date: 20210928
  Receipt Date: 20221114
  Transmission Date: 20230113
  Serious: Yes (Other)
  Sender: FDA-Public Use
  Company Number: AT-PFM-2021-09305

PATIENT
  Age: 77 Year
  Sex: Male
  Weight: 60 kg

DRUGS (6)
  1. BRAFTOVI [Suspect]
     Active Substance: ENCORAFENIB
     Indication: Colorectal cancer
     Dosage: 300 MG/DAY
     Route: 048
     Dates: start: 20210719
  2. CETUXIMAB [Suspect]
     Active Substance: CETUXIMAB
     Indication: Colorectal cancer
     Dosage: 400 MG/M2, WEEKLY    (FORM: LIQUID)
     Route: 042
     Dates: start: 20210719
  3. CETUXIMAB [Suspect]
     Active Substance: CETUXIMAB
     Dosage: 250 MG/M2, WEEKLY (FORM: LIQUID)
     Route: 042
  4. CETUXIMAB [Suspect]
     Active Substance: CETUXIMAB
     Dosage: UNK (FORM: LIQUID)
     Route: 042
     Dates: start: 20210802
  5. CETUXIMAB [Suspect]
     Active Substance: CETUXIMAB
     Dosage: 200 MG/M2, WEEKLY (FORM: LIQUID)
     Route: 042
  6. ULCUSAN [FAMOTIDINE] [Concomitant]
     Indication: Prophylaxis
     Dosage: 40 MG, WEEKLY
     Route: 048
     Dates: start: 20210719

REACTIONS (6)
  - Acute generalised exanthematous pustulosis [Recovered/Resolved]
  - Acute generalised exanthematous pustulosis [Recovered/Resolved]
  - Polyneuropathy [Recovered/Resolved]
  - Periorbital oedema [Recovered/Resolved]
  - Eyelid oedema [Not Recovered/Not Resolved]
  - Carbohydrate antigen 19-9 increased [Recovering/Resolving]

NARRATIVE: CASE EVENT DATE: 20210726
